FAERS Safety Report 6062350-5 (Version None)
Quarter: 2009Q1

REPORT INFORMATION
  Report Type: 
  Country: None (occurrence: None)
  Receive Date: 20090203
  Receipt Date: 20090121
  Transmission Date: 20090719
  Serious: Yes (Death)
  Sender: FDA-Public Use
  Company Number: US-JNJFOC-20090107040

PATIENT
  Sex: Male
  Weight: 87.09 kg

DRUGS (3)
  1. FENTANYL-75 [Suspect]
     Indication: DRUG USE FOR UNKNOWN INDICATION
     Route: 065
  2. MORPHINE [Concomitant]
  3. OPIATES [Concomitant]

REACTIONS (17)
  - ABDOMINAL INJURY [None]
  - ACCIDENTAL DEATH [None]
  - BLOOD PRESSURE DECREASED [None]
  - CHEST INJURY [None]
  - CORONARY ARTERY STENOSIS [None]
  - DIVERTICULUM [None]
  - FRACTURED ISCHIUM [None]
  - FRACTURED SACRUM [None]
  - MULTIPLE INJURIES [None]
  - PLEURAL EFFUSION [None]
  - PNEUMONIA [None]
  - RENAL CYST [None]
  - RESPIRATORY DISORDER [None]
  - RETROPERITONEAL HAEMORRHAGE [None]
  - RIB FRACTURE [None]
  - ROAD TRAFFIC ACCIDENT [None]
  - SHOCK HAEMORRHAGIC [None]
